FAERS Safety Report 21383740 (Version 2)
Quarter: 2022Q4

REPORT INFORMATION
  Report Type: Other
  Country: AU (occurrence: AU)
  Receive Date: 20220928
  Receipt Date: 20221213
  Transmission Date: 20230113
  Serious: No
  Sender: FDA-Public Use
  Company Number: AU-TOLMAR, INC.-22AU036687

PATIENT
  Sex: Male

DRUGS (1)
  1. ELIGARD [Suspect]
     Active Substance: LEUPROLIDE ACETATE
     Indication: Prostate cancer
     Dosage: 22.5 MILLIGRAM, Q 3 MONTH

REACTIONS (10)
  - Apathy [Unknown]
  - Joint injury [Unknown]
  - Periarthritis [Unknown]
  - Bursitis [Unknown]
  - Tendon pain [Unknown]
  - Spinal pain [Unknown]
  - Fatigue [Unknown]
  - Musculoskeletal disorder [Unknown]
  - Libido decreased [Unknown]
  - Arthralgia [Unknown]
